FAERS Safety Report 4633384-X (Version None)
Quarter: 2005Q2

REPORT INFORMATION
  Report Type: 
  Country: None (occurrence: None)
  Receive Date: 20050412
  Receipt Date: 20050310
  Transmission Date: 20051028
  Serious: Yes (Hospitalization)
  Sender: FDA-Public Use
  Company Number: CH-MERCK-0503CHE00011

PATIENT
  Age: 55 Year
  Sex: Male

DRUGS (1)
  1. VIOXX [Suspect]
     Indication: BACK DISORDER
     Route: 048
     Dates: end: 20041001

REACTIONS (3)
  - APHASIA [None]
  - CEREBRAL INFARCTION [None]
  - HEMIPLEGIA [None]
